FAERS Safety Report 23338675 (Version 1)
Quarter: 2023Q4

REPORT INFORMATION
  Report Type: Spontaneous
  Country: US (occurrence: US)
  Receive Date: 20231226
  Receipt Date: 20231226
  Transmission Date: 20240110
  Serious: Yes (Hospitalization, Other)
  Sender: FDA-Public Use
  Company Number: US-TORRENT-00013059

PATIENT
  Age: 39 Year
  Sex: Male

DRUGS (1)
  1. DICHLORPHENAMIDE [Suspect]
     Active Substance: DICHLORPHENAMIDE
     Indication: Myopathy
     Dosage: 1.5 TABLETS, 2X/DAY,
     Route: 048
     Dates: start: 202309

REACTIONS (7)
  - Cerebrovascular accident [Unknown]
  - Asthenia [Unknown]
  - Headache [Unknown]
  - Pain [Unknown]
  - Myalgia [Unknown]
  - Vomiting [Unknown]
  - Illness [Unknown]

NARRATIVE: CASE EVENT DATE: 20231015
